FAERS Safety Report 19947920 (Version 1)
Quarter: 2021Q4

REPORT INFORMATION
  Report Type: Spontaneous
  Country: US (occurrence: US)
  Receive Date: 20211012
  Receipt Date: 20211012
  Transmission Date: 20220303
  Serious: Yes (Death, Life-Threatening, Other)
  Sender: FDA-Public Use
  Company Number: US-ALXN-A202111230

PATIENT

DRUGS (2)
  1. ANDEXXA [Suspect]
     Active Substance: ANDEXANET ALFA
     Indication: Elective procedure
     Dosage: UNK
     Route: 065
  2. ANDEXXA [Suspect]
     Active Substance: ANDEXANET ALFA
     Indication: Off label use

REACTIONS (2)
  - Procedural complication [Fatal]
  - Off label use [Unknown]
